FAERS Safety Report 9448340 (Version 2)
Quarter: 2015Q4

REPORT INFORMATION
  Report Type: Spontaneous
  Country: GB (occurrence: GB)
  Receive Date: 20130808
  Receipt Date: 20151224
  Transmission Date: 20160305
  Serious: Yes (Other)
  Sender: FDA-Public Use
  Company Number: GB-ASTRAZENECA-2013SE59090

PATIENT
  Age: 55 Year
  Sex: Female

DRUGS (14)
  1. ZOMETA [Suspect]
     Active Substance: ZOLEDRONIC ACID
     Indication: METASTASES TO BONE
     Route: 065
     Dates: start: 2010
  2. FLUOROURACIL. [Concomitant]
     Active Substance: FLUOROURACIL
     Dosage: 6 CYCLES
     Dates: start: 2011
  3. CYCLOPHOSPHAMIDE. [Concomitant]
     Active Substance: CYCLOPHOSPHAMIDE
     Dosage: 6 CYCLES
     Dates: start: 2010
  4. DOCETAXEL. [Concomitant]
     Active Substance: DOCETAXEL
     Dosage: 6 CYCLES
     Dates: start: 2012
  5. FASLODEX [Concomitant]
     Active Substance: FULVESTRANT
  6. ZOMETA [Suspect]
     Active Substance: ZOLEDRONIC ACID
     Indication: METASTASES TO BONE
     Route: 065
     Dates: start: 2011
  7. EPIRUBICIN [Concomitant]
     Active Substance: EPIRUBICIN
     Dosage: 6 CYCLES
     Dates: start: 2010
  8. FLUOROURACIL. [Concomitant]
     Active Substance: FLUOROURACIL
     Dosage: 6 CYCLES
     Dates: start: 2010
  9. CAPECITABINE. [Concomitant]
     Active Substance: CAPECITABINE
  10. ERIBULIN [Concomitant]
     Active Substance: ERIBULIN
  11. EVEROLIMUS [Suspect]
     Active Substance: EVEROLIMUS
     Indication: BREAST CANCER
     Route: 065
     Dates: start: 2013
  12. ZOMETA [Suspect]
     Active Substance: ZOLEDRONIC ACID
     Indication: BREAST CANCER
     Route: 065
     Dates: start: 2010
  13. ANASTROZOLE. [Suspect]
     Active Substance: ANASTROZOLE
     Route: 048
     Dates: start: 2011
  14. ZOMETA [Suspect]
     Active Substance: ZOLEDRONIC ACID
     Indication: BREAST CANCER
     Route: 065
     Dates: start: 2011

REACTIONS (19)
  - Infection [Unknown]
  - Metastases to liver [Unknown]
  - Breast cancer [Unknown]
  - Malignant neoplasm progression [Unknown]
  - Diarrhoea [Unknown]
  - Nausea [Unknown]
  - Fatigue [Unknown]
  - Mucosal inflammation [Unknown]
  - Dyspnoea [Unknown]
  - Hyperglycaemia [Unknown]
  - Platelet count decreased [Unknown]
  - Rash [Recovered/Resolved]
  - Hypercholesterolaemia [Unknown]
  - Cough [Unknown]
  - Palmar-plantar erythrodysaesthesia syndrome [Unknown]
  - Hyperlipidaemia [Unknown]
  - Neutropenia [Unknown]
  - Metastases to lung [Unknown]
  - Decreased appetite [Unknown]

NARRATIVE: CASE EVENT DATE: 201307
